FAERS Safety Report 8497379-0 (Version None)
Quarter: 2012Q3

REPORT INFORMATION
  Report Type: 
  Country: None (occurrence: None)
  Receive Date: 20120709
  Receipt Date: 20120611
  Transmission Date: 20120928
  Serious: No
  Sender: FDA-Public Use
  Company Number: US-AMGEN-USASP2012036549

PATIENT
  Age: 43 Year
  Sex: Female

DRUGS (7)
  1. PLAQUENIL [Concomitant]
  2. ENBREL [Suspect]
     Indication: RHEUMATOID ARTHRITIS
     Dosage: 50 MG, QWK
     Route: 058
     Dates: start: 20120401
  3. METHOTREXATE [Concomitant]
  4. NAPROXEN [Concomitant]
  5. FUROSEMIDE [Concomitant]
  6. KLOR-CON [Concomitant]
  7. FOLIC ACID [Concomitant]

REACTIONS (2)
  - HEADACHE [None]
  - INJECTION SITE REACTION [None]
